FAERS Safety Report 13946156 (Version 1)
Quarter: 2017Q3

REPORT INFORMATION
  Report Type: Spontaneous
  Country: US (occurrence: US)
  Receive Date: 20170907
  Receipt Date: 20170907
  Transmission Date: 20171128
  Serious: No
  Sender: FDA-Public Use
  Company Number: US-WEST-WARD PHARMACEUTICALS CORP.-US-H14001-17-01868

PATIENT
  Age: 85 Year
  Sex: Female
  Weight: 48.89 kg

DRUGS (5)
  1. FLUTICASONE PROPIONATE. [Suspect]
     Active Substance: FLUTICASONE PROPIONATE
     Indication: UPPER RESPIRATORY TRACT CONGESTION
     Route: 045
     Dates: start: 201705, end: 201705
  2. THYROID THERAPY [Concomitant]
     Active Substance: UNSPECIFIED INGREDIENT
     Indication: PRODUCT USED FOR UNKNOWN INDICATION
     Route: 065
  3. FLUTICASONE PROPIONATE. [Suspect]
     Active Substance: FLUTICASONE PROPIONATE
     Indication: HYPERSENSITIVITY
     Route: 045
     Dates: start: 201704, end: 201704
  4. TYLENOL [Concomitant]
     Active Substance: ACETAMINOPHEN
     Indication: PRODUCT USED FOR UNKNOWN INDICATION
     Route: 065
  5. FLUTICASONE PROPIONATE. [Suspect]
     Active Substance: FLUTICASONE PROPIONATE
     Indication: NASOPHARYNGITIS

REACTIONS (5)
  - Off label use [Unknown]
  - Ageusia [Not Recovered/Not Resolved]
  - Nasopharyngitis [Not Recovered/Not Resolved]
  - Anosmia [Not Recovered/Not Resolved]
  - Condition aggravated [Not Recovered/Not Resolved]

NARRATIVE: CASE EVENT DATE: 201705
